FAERS Safety Report 18713301 (Version 2)
Quarter: 2021Q1

REPORT INFORMATION
  Report Type: Spontaneous
  Country: US (occurrence: US)
  Receive Date: 20210107
  Receipt Date: 20210113
  Transmission Date: 20210419
  Serious: Yes (Other)
  Sender: FDA-Public Use
  Company Number: US-GLAXOSMITHKLINE-US2020259063

PATIENT
  Age: 60 Year
  Sex: Female

DRUGS (1)
  1. SENSODYNE PRONAMEL INTENSIVE ENAMEL REPAIR WHITENING [Suspect]
     Active Substance: POTASSIUM NITRATE\SODIUM FLUORIDE
     Indication: PRODUCT USED FOR UNKNOWN INDICATION
     Dosage: UNK

REACTIONS (10)
  - Pharyngeal haemorrhage [Unknown]
  - Oropharyngeal pain [Unknown]
  - Throat irritation [Not Recovered/Not Resolved]
  - Oral discomfort [Not Recovered/Not Resolved]
  - Dysgeusia [Unknown]
  - Oral pain [Unknown]
  - Haemoptysis [Unknown]
  - Lymphadenitis [Unknown]
  - Cough [Unknown]
  - Product complaint [Unknown]

NARRATIVE: CASE EVENT DATE: 20201201
